FAERS Safety Report 5799164-7 (Version None)
Quarter: 2008Q3

REPORT INFORMATION
  Report Type: 
  Country: None (occurrence: None)
  Receive Date: 20080701
  Receipt Date: 20080620
  Transmission Date: 20090109
  Serious: Yes (Death)
  Sender: FDA-Public Use
  Company Number: APP200800552

PATIENT
  Age: 64 Year
  Sex: Male

DRUGS (5)
  1. DIPRIVAN [Suspect]
     Indication: CONVULSION
     Dosage: 1 MG/KG, INTRAVENOUS BOLUS; 120 - 140 MGC/KG PER MINUTE, INTRAVENOUS
     Route: 040
  2. LORAZEPAM [Concomitant]
  3. PHENYTOIN [Concomitant]
  4. ZONISAMIDE [Concomitant]
  5. FOSPHENYTOIN (FOSPHYENTOIN) [Concomitant]

REACTIONS (10)
  - ANOXIC ENCEPHALOPATHY [None]
  - BLOOD TRIGLYCERIDES INCREASED [None]
  - HYPERKALAEMIA [None]
  - HYPOTENSION [None]
  - LACTIC ACIDOSIS [None]
  - METABOLIC ACIDOSIS [None]
  - PROPOFOL INFUSION SYNDROME [None]
  - RENAL FAILURE ACUTE [None]
  - RHABDOMYOLYSIS [None]
  - SHOCK [None]
